FAERS Safety Report 25264034 (Version 1)
Quarter: 2025Q2

REPORT INFORMATION
  Report Type: Spontaneous
  Country: DE (occurrence: None)
  Receive Date: 20250502
  Receipt Date: 20250502
  Transmission Date: 20250716
  Serious: Yes (Disabling, Other)
  Sender: FDA-CTU
  Company Number: None

PATIENT
  Age: 37 Year
  Sex: Male
  Weight: 90 kg

DRUGS (1)
  1. CYMBALTA [Suspect]
     Active Substance: DULOXETINE HYDROCHLORIDE
     Indication: Back pain
     Dosage: OTHER QUANTITY : 1 CAPSULE(S);?FREQUENCY : DAILY;?
     Route: 048

REACTIONS (12)
  - Sexual dysfunction [None]
  - Erectile dysfunction [None]
  - Genital hypoaesthesia [None]
  - Genital atrophy [None]
  - Hypoaesthesia [None]
  - Sensory loss [None]
  - Small fibre neuropathy [None]
  - Emotional disorder [None]
  - Anosmia [None]
  - Ageusia [None]
  - Muscular weakness [None]
  - Alopecia [None]

NARRATIVE: CASE EVENT DATE: 20190515
